FAERS Safety Report 4295952-7 (Version None)
Quarter: 2004Q1

REPORT INFORMATION
  Report Type: 
  Country: None (occurrence: None)
  Receive Date: 20040211
  Receipt Date: 20040128
  Transmission Date: 20041129
  Serious: Yes (Death, Hospitalization, Other)
  Sender: FDA-Public Use
  Company Number: 2004-DE-00464GD

PATIENT
  Age: 10 Year
  Sex: Female

DRUGS (8)
  1. NEVIRAPINE (NEVIRAPINE) (NR) [Suspect]
     Indication: HUMAN IMMUNODEFICIENCY VIRUS TRANSMISSION
     Dosage: 4 MG/KG B.I.D. (NR)
  2. .. [Concomitant]
  3. AMPRENAVIR (AMPRENAVIR) (NR) [Suspect]
     Indication: HUMAN IMMUNODEFICIENCY VIRUS TRANSMISSION
     Dosage: 22.5 MG/KG B.I.D. (NR)
  4. DIDANOSINE (DIDANOSINE) (NR) [Suspect]
     Indication: HUMAN IMMUNODEFICIENCY VIRUS TRANSMISSION
     Dosage: 120 MG/ME2 B.I.D. (NR)
  5. LOPINAVIR (LOPINAVIR) (NR) [Suspect]
     Indication: HUMAN IMMUNODEFICIENCY VIRUS TRANSMISSION
     Dosage: 10 MG/KG B.I.D. (NR)
  6. RITONAVIR (RITONAVIR) (NR) [Suspect]
     Indication: HUMAN IMMUNODEFICIENCY VIRUS TRANSMISSION
     Dosage: 2.5 MG/KG B.I.D. (NR)
  7. VORICONAZOLE (VORICONAZOLE) (NR) [Suspect]
     Indication: OESOPHAGEAL CANDIDIASIS
     Dosage: 200 MG B.I.D. (NR) PO
     Route: 048
  8. , [Concomitant]

REACTIONS (15)
  - ADENOVIRUS INFECTION [None]
  - CANDIDIASIS [None]
  - COMA HEPATIC [None]
  - CULTURE STOOL POSITIVE [None]
  - DRUG INTERACTION [None]
  - DRUG LEVEL INCREASED [None]
  - DRUG RESISTANCE [None]
  - FAILURE TO THRIVE [None]
  - HEPATIC ENZYME INCREASED [None]
  - HEPATIC FAILURE [None]
  - MARKEDLY REDUCED DIETARY INTAKE [None]
  - ODYNOPHAGIA [None]
  - OESOPHAGEAL CANDIDIASIS [None]
  - RENAL TUBULAR DISORDER [None]
  - WEIGHT DECREASED [None]
